FAERS Safety Report 8127211-6 (Version None)
Quarter: 2012Q1

REPORT INFORMATION
  Report Type: 
  Country: None (occurrence: None)
  Receive Date: 20120210
  Receipt Date: 20120208
  Transmission Date: 20120608
  Serious: Yes (Other)
  Sender: FDA-Public Use
  Company Number: GR-PFIZER INC-2012035025

PATIENT
  Sex: Female

DRUGS (5)
  1. LASIX [Suspect]
     Dosage: 1.5 MG, UNK
  2. LASIX [Suspect]
     Dosage: 2 MG, UNK
  3. NORVASC [Suspect]
     Dosage: 5 MG, UNK
  4. LASIX [Suspect]
     Dosage: 1 MG, UNK
  5. NORVASC [Suspect]
     Dosage: 10 MG, UNK

REACTIONS (3)
  - BLOOD PRESSURE INCREASED [None]
  - OEDEMA PERIPHERAL [None]
  - AORTIC VALVE DISEASE [None]
